FAERS Safety Report 11375760 (Version 3)
Quarter: 2015Q3

REPORT INFORMATION
  Report Type: Spontaneous
  Country: US (occurrence: US)
  Receive Date: 20150813
  Receipt Date: 20150921
  Transmission Date: 20151125
  Serious: Yes (Other)
  Sender: FDA-Public Use
  Company Number: US-GLAXOSMITHKLINE-US2015GSK115474

PATIENT
  Sex: Female

DRUGS (2)
  1. OXYGEN. [Concomitant]
     Active Substance: OXYGEN
  2. ADVAIR DISKUS [Suspect]
     Active Substance: FLUTICASONE PROPIONATE\SALMETEROL XINAFOATE
     Indication: DYSPNOEA
     Dosage: UNK
     Dates: start: 2010

REACTIONS (8)
  - Dyspnoea [Unknown]
  - Joint swelling [Unknown]
  - Joint fluid drainage [Unknown]
  - Respiratory moniliasis [Unknown]
  - Joint effusion [Unknown]
  - Balance disorder [Unknown]
  - Skin abrasion [Unknown]
  - Wrong drug administered [Unknown]
